FAERS Safety Report 24060624 (Version 7)
Quarter: 2024Q3

REPORT INFORMATION
  Report Type: Spontaneous
  Country: US (occurrence: US)
  Receive Date: 20240708
  Receipt Date: 20240919
  Transmission Date: 20241017
  Serious: Yes (Other)
  Sender: PFIZER
  Company Number: US-PFIZER INC-PV202400088573

PATIENT
  Age: 75 Year
  Sex: Female
  Weight: 82.993 kg

DRUGS (7)
  1. PREMARIN [Suspect]
     Active Substance: ESTROGENS, CONJUGATED
     Indication: Vulvovaginal burning sensation
     Dosage: USED IT IN TWO WEEKS
     Route: 067
  2. PREMARIN [Suspect]
     Active Substance: ESTROGENS, CONJUGATED
     Indication: Vulvovaginal pain
     Dosage: OVER USED BY MISTAKE GONE IN 2 WEEKS
     Dates: start: 20240613, end: 20240627
  3. PREMARIN [Suspect]
     Active Substance: ESTROGENS, CONJUGATED
     Dosage: PLACE 0.5 G VAGINALLY DAILY
     Route: 067
  4. LYRICA [Concomitant]
     Active Substance: PREGABALIN
     Indication: Vulvovaginal pain
     Dosage: 50 MG, 1X/DAY
  5. GEODON [Concomitant]
     Active Substance: ZIPRASIDONE HYDROCHLORIDE\ZIPRASIDONE MESYLATE
     Indication: Vulvovaginal pain
     Dosage: 120 MG, 1X/DAY
  6. LORAZEPAM [Concomitant]
     Active Substance: LORAZEPAM
     Indication: Sleep disorder
     Dosage: 0.5 MG, AS NEEDED
  7. ZYRTEC [Concomitant]
     Active Substance: CETIRIZINE HYDROCHLORIDE
     Indication: Sinus disorder
     Dosage: 10 MG, AS NEEDED

REACTIONS (8)
  - Mental impairment [Unknown]
  - Illness [Unknown]
  - Vulvovaginal pain [Not Recovered/Not Resolved]
  - Vulvovaginal burning sensation [Unknown]
  - Proctalgia [Unknown]
  - Anorectal discomfort [Unknown]
  - Product prescribing error [Unknown]
  - Accidental overdose [Unknown]

NARRATIVE: CASE EVENT DATE: 20240530
